FAERS Safety Report 11734976 (Version 1)
Quarter: 2015Q4

REPORT INFORMATION
  Report Type: Spontaneous
  Country: US (occurrence: US)
  Receive Date: 20151113
  Receipt Date: 20151113
  Transmission Date: 20160304
  Serious: Yes (Hospitalization)
  Sender: FDA-Public Use
  Company Number: PHHY2015US143897

PATIENT
  Age: 27 Year
  Sex: Female

DRUGS (8)
  1. AZITHROMYCIN [Suspect]
     Active Substance: AZITHROMYCIN ANHYDROUS
     Indication: ANTIBIOTIC PROPHYLAXIS
     Route: 065
  2. OSELTAMIVIR [Suspect]
     Active Substance: OSELTAMIVIR
     Indication: ANTIBIOTIC PROPHYLAXIS
     Dosage: FOR 5 DAYS
     Route: 065
  3. PREDNISON [Suspect]
     Active Substance: PREDNISONE
     Indication: ASTHMA
     Route: 065
  4. SALBUTAMOL [Suspect]
     Active Substance: ALBUTEROL
     Indication: ASTHMA
     Route: 065
  5. CEFTRIAXONE. [Suspect]
     Active Substance: CEFTRIAXONE
     Indication: ANTIBIOTIC PROPHYLAXIS
     Route: 065
  6. INFLUENZA VIRUS VACCINE - UNKNOWN INN [Suspect]
     Active Substance: INFLUENZA VIRUS VACCINE
     Indication: IMMUNISATION
     Dosage: 1 DF
     Route: 065
  7. AZITHROMYCIN [Suspect]
     Active Substance: AZITHROMYCIN ANHYDROUS
     Dosage: FOR 10 DAYS
     Route: 065
  8. VANCOMYCIN [Suspect]
     Active Substance: VANCOMYCIN
     Indication: ANTIBIOTIC PROPHYLAXIS
     Route: 065

REACTIONS (20)
  - Dyspnoea [Unknown]
  - Respiratory tract congestion [Unknown]
  - Malaise [Unknown]
  - Cough [Unknown]
  - Influenza A virus test positive [Unknown]
  - Productive cough [Unknown]
  - Maternal exposure during pregnancy [Unknown]
  - Tachycardia [Unknown]
  - Respiratory syncytial virus test positive [Unknown]
  - Caesarean section [None]
  - Pulmonary oedema [Unknown]
  - Asthma [Unknown]
  - Sputum discoloured [Unknown]
  - Chills [Unknown]
  - Hypotension [Unknown]
  - Pyrexia [Unknown]
  - Secretion discharge [Unknown]
  - Breech presentation [Unknown]
  - Premature rupture of membranes [Unknown]
  - Premature delivery [Unknown]
